FAERS Safety Report 24379236 (Version 2)
Quarter: 2024Q4

REPORT INFORMATION
  Report Type: Spontaneous
  Country: GB (occurrence: GB)
  Receive Date: 20240930
  Receipt Date: 20241119
  Transmission Date: 20250115
  Serious: Yes (Hospitalization, Other)
  Sender: VERTEX
  Company Number: GB-VERTEX PHARMACEUTICALS-2024-015239

PATIENT
  Sex: Female

DRUGS (5)
  1. ELEXACAFTOR\IVACAFTOR\TEZACAFTOR [Suspect]
     Active Substance: ELEXACAFTOR\IVACAFTOR\TEZACAFTOR
     Indication: Cystic fibrosis
     Dosage: 75 MG IVA/ 50 MG TEZA/ 100 MG ELEXA; TWO TABS IN AM
     Route: 048
     Dates: start: 20210101
  2. KALYDECO [Suspect]
     Active Substance: IVACAFTOR
     Indication: Cystic fibrosis
     Dosage: UNKNOWN DOSAGE REGIMEN
     Route: 048
     Dates: start: 20210101
  3. COLISTIMETHATE SODIUM [Concomitant]
     Active Substance: COLISTIMETHATE SODIUM
  4. DIAZEPAM [Concomitant]
     Active Substance: DIAZEPAM
  5. CODEINE [Concomitant]
     Active Substance: CODEINE

REACTIONS (3)
  - Multiple organ dysfunction syndrome [Not Recovered/Not Resolved]
  - Hospitalisation [Unknown]
  - Lung disorder [Unknown]

NARRATIVE: CASE EVENT DATE: 20230101
